FAERS Safety Report 9593763 (Version 1)
Quarter: 2013Q4

REPORT INFORMATION
  Report Type: Spontaneous
  Country: US (occurrence: None)
  Receive Date: 20131002
  Receipt Date: 20131002
  Transmission Date: 20140711
  Serious: Yes (Hospitalization)
  Sender: FDA-Public Use
  Company Number: NSR_01260_2013

PATIENT
  Age: 22 Year
  Sex: Female

DRUGS (3)
  1. CLONIDINE [Suspect]
     Indication: PRODUCT USED FOR UNKNOWN INDICATION
  2. GLYBURDE [Concomitant]
  3. FLUOXETINE [Concomitant]

REACTIONS (8)
  - Gait disturbance [None]
  - Neck injury [None]
  - Economic problem [None]
  - Treatment noncompliance [None]
  - Withdrawal hypertension [None]
  - No therapeutic response [None]
  - Cerebrovascular accident [None]
  - Vertebral artery dissection [None]
